FAERS Safety Report 25366925 (Version 1)
Quarter: 2025Q2

REPORT INFORMATION
  Report Type: Report from Study
  Country: CA (occurrence: CA)
  Receive Date: 20250528
  Receipt Date: 20250528
  Transmission Date: 20250717
  Serious: Yes (Death)
  Sender: ABBVIE
  Company Number: CA-ABBVIE-6301904

PATIENT
  Age: 68 Year
  Sex: Male

DRUGS (1)
  1. LUPRON [Suspect]
     Active Substance: LEUPROLIDE ACETATE
     Indication: Prostate cancer
     Dosage: FORM STRENGTH: 30 MILLIGRAM
     Route: 030
     Dates: start: 20130304, end: 20250512

REACTIONS (1)
  - Death [Fatal]

NARRATIVE: CASE EVENT DATE: 20250521
